FAERS Safety Report 8196326-9 (Version None)
Quarter: 2012Q1

REPORT INFORMATION
  Report Type: 
  Country: None (occurrence: None)
  Receive Date: 20120309
  Receipt Date: 20120306
  Transmission Date: 20120608
  Serious: No
  Sender: FDA-Public Use
  Company Number: US-PFIZER INC-2012060223

PATIENT
  Sex: Female
  Weight: 86.168 kg

DRUGS (13)
  1. PANTOPRAZOLE [Concomitant]
     Dosage: 40 MG, 1X/DAY
  2. ADVAIR DISKUS 100/50 [Concomitant]
     Dosage: UNK
  3. DEXAMPHETAMINE [Concomitant]
     Dosage: 10 MG, AS NEEDED
  4. CELEBREX [Suspect]
     Indication: ARTHRITIS
  5. ATENOLOL [Concomitant]
     Dosage: 50 MG, 1X/DAY
  6. BUPROPION [Concomitant]
     Dosage: 150 MG, 3X/DAY
  7. MAXAIR [Concomitant]
     Dosage: UNK, AS NEEDED
     Route: 045
  8. TYLENOL [Concomitant]
     Dosage: 50 MG, AS NEEDED
  9. CLONAZEPAM [Concomitant]
     Dosage: 0.5 MG, 4X/DAY
  10. LAMOTRIGINE [Concomitant]
     Dosage: 50 MG, 2X/DAY
  11. CELEBREX [Suspect]
     Indication: MUSCLE TIGHTNESS
     Dosage: 200 MG, 2X/DAY
     Route: 048
     Dates: end: 20120228
  12. HYDROCHLOROTHIAZIDE [Concomitant]
     Dosage: 25 MG, 1X/DAY
  13. DEXAMPHETAMINE [Concomitant]
     Dosage: 20 MG, 1X/DAY

REACTIONS (2)
  - HEADACHE [None]
  - PAIN [None]
